FAERS Safety Report 22333129 (Version 2)
Quarter: 2023Q2

REPORT INFORMATION
  Report Type: Spontaneous
  Country: SO (occurrence: None)
  Receive Date: 20230517
  Receipt Date: 20230606
  Transmission Date: 20230721
  Serious: Yes (Hospitalization, Other)
  Sender: FDA-Public Use
  Company Number: SO-Unichem Pharmaceuticals (USA) Inc-UCM202305-000578

PATIENT
  Age: 36 Year
  Sex: Male

DRUGS (1)
  1. TRAMADOL HCL [Suspect]
     Active Substance: TRAMADOL HYDROCHLORIDE
     Indication: Erectile dysfunction
     Dosage: UNKNOWN

REACTIONS (5)
  - Haemorrhagic stroke [Recovering/Resolving]
  - Hemiplegia [Recovering/Resolving]
  - Agitation [Recovering/Resolving]
  - Drug dependence [Unknown]
  - Product use in unapproved indication [Unknown]
